FAERS Safety Report 4509036-3 (Version None)
Quarter: 2004Q4

REPORT INFORMATION
  Report Type: 
  Country: None (occurrence: None)
  Receive Date: 20041122
  Receipt Date: 20041122
  Transmission Date: 20050328
  Serious: No
  Sender: FDA-Public Use
  Company Number: None

PATIENT
  Age: 69 Year
  Sex: Male
  Weight: 93.441 kg

DRUGS (8)
  1. VORICONAZOLE [Suspect]
     Indication: ASPERGILLOSIS
     Dosage: 300 MG IV BID
     Route: 042
     Dates: start: 20041021, end: 20041025
  2. VORICONAZOLE [Suspect]
     Indication: PROPHYLAXIS
     Dosage: 300 MG IV BID
     Route: 042
     Dates: start: 20041021, end: 20041025
  3. VIOXX [Concomitant]
  4. ACCUPRIL [Concomitant]
  5. MINOXIDIL [Concomitant]
  6. LOPRESSOR [Concomitant]
  7. COUMADIN [Concomitant]
  8. LOMOTIL [Concomitant]

REACTIONS (3)
  - HALLUCINATION [None]
  - MENTAL STATUS CHANGES [None]
  - VISUAL DISTURBANCE [None]
